APPROVED DRUG PRODUCT: GENAPAX
Active Ingredient: GENTIAN VIOLET
Strength: 5MG
Dosage Form/Route: TAMPON;VAGINAL
Application: A085017 | Product #001
Applicant: KEY PHARMACEUTICALS INC SUB SCHERING PLOUGH CORP
Approved: Approved Prior to Jan 1, 1982 | RLD: No | RS: No | Type: DISCN